FAERS Safety Report 25652250 (Version 1)
Quarter: 2025Q3

REPORT INFORMATION
  Report Type: Spontaneous
  Country: EU (occurrence: EU)
  Receive Date: 20250807
  Receipt Date: 20250807
  Transmission Date: 20251020
  Serious: Yes (Hospitalization, Other)
  Sender: CELLTRION
  Company Number: None

PATIENT

DRUGS (2)
  1. YUFLYMA [Suspect]
     Active Substance: ADALIMUMAB-AATY
     Indication: Hidradenitis
     Dosage: 40 MG EVERY 1 WEEK
     Route: 058
     Dates: start: 20230601, end: 20250305
  2. YUFLYMA [Suspect]
     Active Substance: ADALIMUMAB-AATY

REACTIONS (3)
  - Hidradenitis [Unknown]
  - Crohn^s disease [Unknown]
  - Guttate psoriasis [Unknown]

NARRATIVE: CASE EVENT DATE: 20250305
